FAERS Safety Report 5470034-7 (Version None)
Quarter: 2007Q3

REPORT INFORMATION
  Report Type: 
  Country: None (occurrence: None)
  Receive Date: 20070927
  Receipt Date: 20070925
  Transmission Date: 20080115
  Serious: Yes (Hospitalization)
  Sender: FDA-Public Use
  Company Number: US-BOEHRINGER INGELHEIM PHARMACEUTICALS, INC.-2007-BP-20713BP

PATIENT
  Age: 82 Year
  Sex: Male

DRUGS (7)
  1. FLOMAX [Suspect]
     Indication: BENIGN PROSTATIC HYPERPLASIA
     Route: 048
     Dates: start: 20010101
  2. FLOMAX [Suspect]
     Indication: POLYURIA
  3. FLOMAX [Suspect]
     Indication: NOCTURIA
  4. LITHIUM [Concomitant]
  5. NORTRIPTYLINE HCL [Concomitant]
  6. AGGRENOX [Concomitant]
     Indication: CEREBROVASCULAR ACCIDENT PROPHYLAXIS
  7. PROSCAR [Concomitant]

REACTIONS (2)
  - CEREBROVASCULAR ACCIDENT [None]
  - DRUG INEFFECTIVE [None]
